FAERS Safety Report 18492998 (Version 2)
Quarter: 2020Q4

REPORT INFORMATION
  Report Type: Other
  Country: JP (occurrence: JP)
  Receive Date: 20201112
  Receipt Date: 20201201
  Transmission Date: 20210114
  Serious: Yes (Hospitalization, Other)
  Sender: FDA-Public Use
  Company Number: JP-ROCHE-2710753

PATIENT
  Age: 73 Year
  Sex: Female
  Weight: 47 kg

DRUGS (14)
  1. TRAMAL OD [Concomitant]
     Active Substance: TRAMADOL
     Indication: PAIN
     Route: 048
     Dates: start: 20200915
  2. DENOTAS [Concomitant]
     Active Substance: CALCIUM CARBONATE\CHOLECALCIFEROL\MAGNESIUM CARBONATE
     Indication: BONE LESION
     Route: 048
     Dates: start: 20181211
  3. SODIUM RABEPRAZOLE [Concomitant]
     Active Substance: RABEPRAZOLE SODIUM
     Indication: GASTRITIS PROPHYLAXIS
     Route: 048
     Dates: start: 20181211
  4. BEVACIZUMAB. [Suspect]
     Active Substance: BEVACIZUMAB
     Dosage: ONE STAGE WEIGHT LOSS
     Route: 041
     Dates: start: 20201022
  5. ATEZOLIZUMAB. [Suspect]
     Active Substance: ATEZOLIZUMAB
     Indication: LUNG ADENOCARCINOMA
     Route: 041
     Dates: start: 20201001, end: 20201001
  6. ACETAMINOPHEN. [Concomitant]
     Active Substance: ACETAMINOPHEN
     Indication: PAIN
     Route: 048
     Dates: start: 20200915
  7. MAGNESIUM OXIDE. [Concomitant]
     Active Substance: MAGNESIUM OXIDE
     Indication: FAECAL MANAGEMENT
     Route: 048
     Dates: start: 20201002, end: 20201031
  8. CARBOPLATIN. [Concomitant]
     Active Substance: CARBOPLATIN
     Indication: LUNG ADENOCARCINOMA
     Route: 041
     Dates: start: 20201001, end: 20201001
  9. CARBOPLATIN. [Concomitant]
     Active Substance: CARBOPLATIN
     Route: 041
     Dates: start: 20201022, end: 20201022
  10. PACLITAXEL. [Concomitant]
     Active Substance: PACLITAXEL
     Route: 041
     Dates: start: 20201001, end: 20201001
  11. ATEZOLIZUMAB. [Suspect]
     Active Substance: ATEZOLIZUMAB
     Dosage: ONE STAGE WEIGHT LOSS
     Route: 041
     Dates: start: 20201022
  12. LYRICA [Concomitant]
     Active Substance: PREGABALIN
     Indication: PAIN
     Route: 048
     Dates: start: 20201001
  13. PACLITAXEL. [Concomitant]
     Active Substance: PACLITAXEL
     Route: 041
     Dates: start: 20201022
  14. BEVACIZUMAB. [Suspect]
     Active Substance: BEVACIZUMAB
     Indication: PRODUCT USED FOR UNKNOWN INDICATION
     Route: 041
     Dates: start: 20201001, end: 20201001

REACTIONS (5)
  - Diarrhoea [Recovered/Resolved]
  - Febrile neutropenia [Recovering/Resolving]
  - Gastroenteritis [Unknown]
  - Anaemia [Recovering/Resolving]
  - Neutrophil count decreased [Unknown]

NARRATIVE: CASE EVENT DATE: 20201012
